FAERS Safety Report 6004036-9 (Version None)
Quarter: 2008Q4

REPORT INFORMATION
  Report Type: 
  Country: None (occurrence: None)
  Receive Date: 20081216
  Receipt Date: 20081209
  Transmission Date: 20090506
  Serious: Yes (Other)
  Sender: FDA-Public Use
  Company Number: A0760415A

PATIENT
  Age: 64 Year
  Sex: Female

DRUGS (15)
  1. AUGMENTIN '125' [Suspect]
     Indication: SINUSITIS
     Route: 048
     Dates: start: 20050126, end: 20050206
  2. KETEK [Suspect]
     Indication: CHRONIC SINUSITIS
     Dosage: 400MG UNKNOWN
     Route: 048
     Dates: start: 20050405
  3. PREDNISONE TAB [Suspect]
     Indication: DRUG USE FOR UNKNOWN INDICATION
  4. IBUPROFEN [Suspect]
     Indication: DRUG USE FOR UNKNOWN INDICATION
     Dosage: 200MG SIX TIMES PER DAY
     Route: 048
  5. AZITHROMYCIN [Suspect]
     Indication: DRUG USE FOR UNKNOWN INDICATION
     Route: 065
  6. ZOCOR [Suspect]
     Dosage: 10MGD PER DAY
     Route: 048
  7. HERBAL MEDICATION [Suspect]
     Indication: BREAST CYST
     Route: 065
  8. FOSAMAX [Concomitant]
  9. MULTI-VITAMIN [Concomitant]
  10. CO Q10 [Concomitant]
  11. PRIMROSE OIL [Concomitant]
  12. VITAMIN E [Concomitant]
  13. MUCINEX [Concomitant]
  14. ATROVENT [Concomitant]
  15. LASIX [Concomitant]

REACTIONS (21)
  - AGEUSIA [None]
  - ANOREXIA [None]
  - BLOOD ALBUMIN DECREASED [None]
  - BLOOD BILIRUBIN INCREASED [None]
  - C-REACTIVE PROTEIN INCREASED [None]
  - FATIGUE [None]
  - FLUID RETENTION [None]
  - HAEMATURIA [None]
  - HEADACHE [None]
  - HEPATIC ENZYME INCREASED [None]
  - HERPES ZOSTER [None]
  - JAUNDICE [None]
  - LIVER INJURY [None]
  - ORAL CANDIDIASIS [None]
  - PAIN [None]
  - PROTEINURIA [None]
  - PYREXIA [None]
  - RASH [None]
  - URINE ANALYSIS ABNORMAL [None]
  - VISION BLURRED [None]
  - WEIGHT DECREASED [None]
